FAERS Safety Report 6854712-0 (Version None)
Quarter: 2010Q3

REPORT INFORMATION
  Report Type: 
  Country: None (occurrence: None)
  Receive Date: 20100717
  Receipt Date: 20080110
  Transmission Date: 20110219
  Serious: No
  Sender: FDA-Public Use
  Company Number: US-PFIZER INC-2008004534

PATIENT
  Sex: Female
  Weight: 81.818 kg

DRUGS (6)
  1. CHANTIX [Suspect]
     Indication: SMOKING CESSATION THERAPY
     Dates: start: 20071201, end: 20071201
  2. PROZAC [Concomitant]
  3. AMITRIPTYLINE HYDROCHLORIDE [Concomitant]
  4. NORTRIPTYLINE [Concomitant]
  5. ANTIHYPERTENSIVES [Concomitant]
  6. VALIUM [Concomitant]

REACTIONS (2)
  - DIARRHOEA [None]
  - SINUSITIS [None]
